FAERS Safety Report 6163194-6 (Version None)
Quarter: 2009Q2

REPORT INFORMATION
  Report Type: 
  Country: None (occurrence: None)
  Receive Date: 20090420
  Receipt Date: 20090408
  Transmission Date: 20091009
  Serious: Yes (Other)
  Sender: FDA-Public Use
  Company Number: 2009US000818

PATIENT
  Age: 62 Year
  Sex: 0

DRUGS (8)
  1. LEXISCAN [Suspect]
     Indication: SCAN MYOCARDIAL PERFUSION
     Dosage: 0.4 MG,IV NOS
     Route: 042
     Dates: start: 20090312, end: 20090312
  2. PRILOSEC [Concomitant]
  3. VITAMINS NOS (VITAMINS NOS) [Concomitant]
  4. METOPROLOL TARTRATE [Concomitant]
  5. MOTRIN [Concomitant]
  6. ASPIRIN [Concomitant]
  7. LISINOPRIL [Concomitant]
  8. AMLODIPINE [Concomitant]

REACTIONS (4)
  - HEADACHE [None]
  - HEART RATE INCREASED [None]
  - HYPERTENSION [None]
  - PRODUCT QUALITY ISSUE [None]
